FAERS Safety Report 4433895-6 (Version None)
Quarter: 2004Q3

REPORT INFORMATION
  Report Type: 
  Country: None (occurrence: None)
  Receive Date: 20040824
  Receipt Date: 20040824
  Transmission Date: 20050211
  Serious: Yes (Hospitalization)
  Sender: FDA-Public Use
  Company Number: None

PATIENT
  Age: 17 Year
  Sex: Male

DRUGS (3)
  1. ROFECOXIB [Suspect]
     Indication: PAIN
     Dosage: 25 MG BID ORAL
     Route: 048
     Dates: start: 20040604, end: 20040605
  2. MIRALAX [Concomitant]
  3. VICODIN [Concomitant]

REACTIONS (3)
  - CHILLS [None]
  - HYPERHIDROSIS [None]
  - HYPOTHERMIA [None]
